FAERS Safety Report 8551158-4 (Version None)
Quarter: 2012Q3

REPORT INFORMATION
  Report Type: 
  Country: None (occurrence: None)
  Receive Date: 20120730
  Receipt Date: 20120723
  Transmission Date: 20120928
  Serious: Yes (Hospitalization, Other)
  Sender: FDA-Public Use
  Company Number: US-TEVA-298938USA

PATIENT
  Age: 44 Year
  Sex: Male

DRUGS (6)
  1. TRAMADOL HYDROCHLORIDE [Suspect]
  2. OMEPRAZOLE [Concomitant]
     Indication: GASTROOESOPHAGEAL REFLUX DISEASE
  3. GABAPENTIN [Suspect]
  4. HYDROXYZINE [Concomitant]
  5. LORATADINE [Concomitant]
  6. METOPROLOL TARTRATE [Concomitant]

REACTIONS (13)
  - DECREASED APPETITE [None]
  - HAEMATOCHEZIA [None]
  - DRUG ADMINISTRATION ERROR [None]
  - OESOPHAGEAL SPASM [None]
  - INSOMNIA [None]
  - OESOPHAGEAL HAEMORRHAGE [None]
  - HAEMATEMESIS [None]
  - ABDOMINAL PAIN UPPER [None]
  - GASTRIC HAEMORRHAGE [None]
  - HICCUPS [None]
  - EROSIVE OESOPHAGITIS [None]
  - VOMITING [None]
  - CHEST PAIN [None]
